FAERS Safety Report 13428231 (Version 1)
Quarter: 2017Q2

REPORT INFORMATION
  Report Type: Spontaneous
  Country: GB (occurrence: GB)
  Receive Date: 20170411
  Receipt Date: 20170411
  Transmission Date: 20170830
  Serious: Yes (Other)
  Sender: FDA-Public Use
  Company Number: GB-TEVA-755406ACC

PATIENT
  Age: 57 Year
  Sex: Female
  Weight: 51.71 kg

DRUGS (3)
  1. RIZATRIPTAN. [Concomitant]
     Active Substance: RIZATRIPTAN
  2. AMITRIPTYLINE [Concomitant]
     Active Substance: AMITRIPTYLINE
  3. PREDNISOLONE. [Suspect]
     Active Substance: PREDNISOLONE
     Indication: LICHEN PLANUS
     Dosage: 20MG A DAY FOR 5 DAYS, 15MG FOR 5 DAYS, 10 MG FOR 5 DAYS, 5 MG FOR 5 DAYS.
     Route: 048
     Dates: start: 20170318

REACTIONS (3)
  - Rash pruritic [Unknown]
  - Skin burning sensation [Unknown]
  - Dizziness [Unknown]

NARRATIVE: CASE EVENT DATE: 20170318
